FAERS Safety Report 6678739-7 (Version None)
Quarter: 2010Q2

REPORT INFORMATION
  Report Type: 
  Country: None (occurrence: None)
  Receive Date: 20100413
  Receipt Date: 20100406
  Transmission Date: 20101027
  Serious: Yes (Hospitalization)
  Sender: FDA-Public Use
  Company Number: DE-JNJFOC-20100300420

PATIENT
  Age: 43 Year
  Sex: Female

DRUGS (11)
  1. RISPERDAL CONSTA [Suspect]
     Indication: DRUG USE FOR UNKNOWN INDICATION
     Route: 030
     Dates: start: 20090701, end: 20090715
  2. RISPERDAL [Suspect]
     Indication: DRUG USE FOR UNKNOWN INDICATION
     Route: 048
     Dates: start: 20090709, end: 20090713
  3. ZYPREXA [Suspect]
     Indication: DRUG USE FOR UNKNOWN INDICATION
     Route: 048
     Dates: start: 20090702
  4. ZYPREXA [Suspect]
     Route: 048
     Dates: start: 20090702
  5. ZYPREXA [Suspect]
     Route: 048
     Dates: start: 20090702
  6. ZYPREXA [Suspect]
     Route: 048
     Dates: start: 20090702
  7. ZYPREXA [Suspect]
     Route: 048
     Dates: start: 20090702
  8. TAVOR [Concomitant]
     Route: 048
     Dates: start: 20090704
  9. TAVOR [Concomitant]
     Route: 048
     Dates: start: 20090704
  10. TAVOR [Concomitant]
     Route: 048
     Dates: start: 20090704
  11. TAVOR [Concomitant]
     Route: 048
     Dates: start: 20090704

REACTIONS (3)
  - BONE MARROW TOXICITY [None]
  - LEUKOPENIA [None]
  - NEUTROPENIA [None]
